FAERS Safety Report 6793838-7 (Version None)
Quarter: 2010Q2

REPORT INFORMATION
  Report Type: 
  Country: None (occurrence: None)
  Receive Date: 20100624
  Receipt Date: 20090604
  Transmission Date: 20101027
  Serious: No
  Sender: FDA-Public Use
  Company Number: US-PFIZER INC-2008150680

PATIENT
  Age: 62 Year
  Sex: Male
  Weight: 78 kg

DRUGS (5)
  1. GEODON [Suspect]
     Indication: PSYCHOTIC DISORDER
     Dosage: UNK
  2. PROLIXIN [Concomitant]
     Dosage: UNK
  3. REMERON [Concomitant]
     Dosage: UNK
  4. NICOTINE [Concomitant]
     Dosage: UNK
  5. PRILOSEC [Concomitant]
     Dosage: UNK

REACTIONS (1)
  - DRUG INEFFECTIVE [None]
